FAERS Safety Report 9336632 (Version 1)
Quarter: 2013Q2

REPORT INFORMATION
  Report Type: Spontaneous
  Country: FR (occurrence: FR)
  Receive Date: 20130607
  Receipt Date: 20130607
  Transmission Date: 20140414
  Serious: Yes (Hospitalization)
  Sender: FDA-Public Use
  Company Number: PHHY2013FR057529

PATIENT
  Age: 62 Year
  Sex: Male

DRUGS (2)
  1. RASILEZ [Suspect]
     Dosage: 300 MG, QD
     Route: 048
     Dates: start: 2012
  2. LERCAN [Suspect]
     Dosage: 10 MG, QD
     Dates: end: 201302

REACTIONS (1)
  - Myalgia [Unknown]
